FAERS Safety Report 6814375-7 (Version None)
Quarter: 2010Q3

REPORT INFORMATION
  Report Type: 
  Country: None (occurrence: None)
  Receive Date: 20100702
  Receipt Date: 20100620
  Transmission Date: 20110219
  Serious: Yes (Hospitalization)
  Sender: FDA-Public Use
  Company Number: US-ELI_LILLY_AND_COMPANY-US201006005337

PATIENT
  Sex: Male

DRUGS (13)
  1. GEMCITABINE HYDROCHLORIDE [Suspect]
     Indication: PANCREATIC CARCINOMA
     Dosage: 1980 MG, UNKNOWN
     Dates: start: 20100401, end: 20100401
  2. GEMCITABINE HYDROCHLORIDE [Suspect]
     Dosage: 1224 MG, UNKNOWN
     Dates: start: 20100603, end: 20100603
  3. OTHER PHARMA COMPANY INV DRUG [Suspect]
     Indication: PANCREATIC CARCINOMA
     Dosage: 248 MG, WEEKLY (1/W)
     Dates: start: 20100401
  4. OTHER PHARMA COMPANY INV DRUG [Suspect]
     Dosage: 153 MG, WEEKLY (1/W)
     Dates: end: 20100603
  5. MULTI-VITAMIN [Concomitant]
     Indication: VITAMIN SUPPLEMENTATION
     Dosage: 1 D/F, DAILY (1/D)
     Dates: start: 20100331
  6. VITAMIN C [Concomitant]
     Indication: VITAMIN SUPPLEMENTATION
     Dosage: 1 D/F, DAILY (1/D)
     Dates: start: 20100331
  7. BENADRYL [Concomitant]
     Dosage: 25 MG, AS NEEDED
     Dates: start: 20100331
  8. CREON [Concomitant]
     Dosage: 12000 U, UNK
     Route: 048
     Dates: start: 20100401
  9. XANAX [Concomitant]
     Indication: ANXIETY
     Dosage: 0.25 MG, AS NEEDED
     Route: 048
     Dates: start: 20100404
  10. PROCHLORPERAZINE [Concomitant]
     Dosage: 1 D/F, AS NEEDED
     Route: 048
     Dates: start: 20100421
  11. LASIX [Concomitant]
     Dosage: 20 MG, UNK
     Dates: start: 20100423
  12. POTASSIUM CHLORIDE [Concomitant]
     Dosage: 10 D/F, UNK
     Route: 048
     Dates: start: 20100506
  13. MARINOL [Concomitant]

REACTIONS (1)
  - PNEUMONIA [None]
